FAERS Safety Report 7604872-9 (Version None)
Quarter: 2011Q3

REPORT INFORMATION
  Report Type: 
  Country: None (occurrence: None)
  Receive Date: 20110712
  Receipt Date: 20110629
  Transmission Date: 20111222
  Serious: Yes (Death)
  Sender: FDA-Public Use
  Company Number: AU-MYLANLABS-2011S1013771

PATIENT
  Age: 35 Year

DRUGS (5)
  1. ACETAMINOPHEN [Suspect]
     Route: 065
  2. METHADONE HCL [Suspect]
     Route: 065
  3. CODEINE SULFATE [Suspect]
     Route: 065
  4. IBUPROFEN [Suspect]
     Route: 065
  5. METHAMPHETAMINE HYDROCHLORIDE [Suspect]
     Route: 065

REACTIONS (3)
  - ARRHYTHMIA [None]
  - POISONING [None]
  - OVERDOSE [None]
